FAERS Safety Report 9757388 (Version 1)
Quarter: 2013Q4

REPORT INFORMATION
  Report Type: Report from Study
  Country: TR (occurrence: TR)
  Receive Date: 20131214
  Receipt Date: 20131214
  Transmission Date: 20140711
  Serious: Yes (Other)
  Sender: FDA-Public Use
  Company Number: TR-US-EMD SERONO, INC.-7257139

PATIENT
  Age: 35 Year
  Sex: Female
  Weight: 60 kg

DRUGS (2)
  1. REBIF [Suspect]
     Indication: MULTIPLE SCLEROSIS
     Route: 058
     Dates: start: 2007
  2. AMANTADINE [Suspect]
     Indication: VITAMIN SUPPLEMENTATION
     Route: 048
     Dates: start: 2008

REACTIONS (2)
  - Diabetes mellitus [Not Recovered/Not Resolved]
  - Hepatic enzyme increased [Not Recovered/Not Resolved]
